FAERS Safety Report 12611456 (Version 3)
Quarter: 2016Q3

REPORT INFORMATION
  Report Type: Spontaneous
  Country: US (occurrence: US)
  Receive Date: 20160801
  Receipt Date: 20160919
  Transmission Date: 20161109
  Serious: Yes (Other)
  Sender: FDA-Public Use
  Company Number: US-PFIZER INC-2016364882

PATIENT
  Age: 34 Year
  Sex: Female
  Weight: 38.55 kg

DRUGS (1)
  1. RELPAX [Suspect]
     Active Substance: ELETRIPTAN HYDROBROMIDE
     Dosage: UNK

REACTIONS (13)
  - Weight decreased [Unknown]
  - Pancreatic insufficiency [Unknown]
  - Seizure [Unknown]
  - Hiatus hernia [Unknown]
  - Malaise [Unknown]
  - Hypothyroidism [Unknown]
  - Diarrhoea [Unknown]
  - Loss of consciousness [Unknown]
  - Gastric ulcer [Unknown]
  - Gallbladder non-functioning [Unknown]
  - Thyroid disorder [Unknown]
  - Migraine [Unknown]
  - Organ failure [Unknown]

NARRATIVE: CASE EVENT DATE: 2001
